FAERS Safety Report 9656614 (Version 1)
Quarter: 2013Q4

REPORT INFORMATION
  Report Type: Spontaneous
  Country: US (occurrence: None)
  Receive Date: 20131029
  Receipt Date: 20131029
  Transmission Date: 20140711
  Serious: Yes (Other)
  Sender: FDA-Public Use
  Company Number: None

PATIENT
  Age: 2 Year
  Sex: Male
  Weight: 15.42 kg

DRUGS (1)
  1. KENALOG [Suspect]
     Indication: DERMATITIS CONTACT
     Dosage: UNKNOWN DOSAGE NOT DOCUMENTED IN CHART NOTES 1X IM
     Route: 030
     Dates: start: 20130711, end: 20130711

REACTIONS (1)
  - Injection site atrophy [None]
